FAERS Safety Report 25529879 (Version 1)
Quarter: 2025Q3

REPORT INFORMATION
  Report Type: Spontaneous
  Country: RU (occurrence: RU)
  Receive Date: 20250708
  Receipt Date: 20250708
  Transmission Date: 20251021
  Serious: Yes (Other)
  Sender: SANOFI AVENTIS
  Company Number: RU-SA-2025SA191677

PATIENT
  Age: 64 Year
  Sex: Female

DRUGS (2)
  1. ARAVA [Suspect]
     Active Substance: LEFLUNOMIDE
     Indication: Rheumatoid arthritis
     Dosage: 20 MG, QD
  2. OLOKIZUMAB [Suspect]
     Active Substance: OLOKIZUMAB
     Indication: Rheumatoid arthritis
     Dosage: 64.000MG Q4W
     Route: 058
     Dates: start: 202501, end: 202505

REACTIONS (1)
  - Hyperkeratosis [Recovering/Resolving]

NARRATIVE: CASE EVENT DATE: 20250501
